FAERS Safety Report 12974903 (Version 1)
Quarter: 2016Q4

REPORT INFORMATION
  Report Type: Spontaneous
  Country: RU (occurrence: RU)
  Receive Date: 20161125
  Receipt Date: 20161125
  Transmission Date: 20170207
  Serious: Yes (Other)
  Sender: FDA-Public Use
  Company Number: RU-ROCHE-1858632

PATIENT
  Sex: Female

DRUGS (1)
  1. MABTHERA [Suspect]
     Active Substance: RITUXIMAB
     Indication: STILL^S DISEASE ADULT ONSET
     Dosage: THE DURATION OF THERAPY IS 1,5 YEAR
     Route: 042
     Dates: start: 2015, end: 20161004

REACTIONS (6)
  - JC virus infection [Unknown]
  - Progressive multifocal leukoencephalopathy [Unknown]
  - Off label use [Unknown]
  - Headache [Unknown]
  - Dizziness [Unknown]
  - Memory impairment [Unknown]

NARRATIVE: CASE EVENT DATE: 201610
